FAERS Safety Report 24306637 (Version 1)
Quarter: 2024Q3

REPORT INFORMATION
  Report Type: Spontaneous
  Country: US (occurrence: None)
  Receive Date: 20240910
  Receipt Date: 20240910
  Transmission Date: 20241016
  Serious: No
  Sender: Public
  Company Number: None

PATIENT
  Age: 13 Year
  Sex: Female
  Weight: 77.11 kg

DRUGS (1)
  1. FENSOLVI [Suspect]
     Active Substance: LEUPROLIDE ACETATE
     Indication: Precocious puberty
     Dosage: 45MG SUBCUTANEOULSY EVERY 180 DAYS AS DIRECT
     Route: 058
     Dates: start: 2024

REACTIONS (1)
  - Therapeutic product effect decreased [None]
